FAERS Safety Report 6581869-1 (Version None)
Quarter: 2010Q1

REPORT INFORMATION
  Report Type: 
  Country: None (occurrence: None)
  Receive Date: 20100215
  Receipt Date: 20100205
  Transmission Date: 20100710
  Serious: No
  Sender: FDA-Public Use
  Company Number: US-B.I. PHARMACEUTICALS,INC./RIDGEFIELD-2010-BP-01488BP

PATIENT
  Sex: Male

DRUGS (3)
  1. ZANTAC 150 [Suspect]
     Indication: ERUCTATION
     Dosage: 150 MG
     Route: 048
     Dates: start: 20100202
  2. LORAZEPAM [Concomitant]
     Indication: SLEEP DISORDER
  3. VITAMINS [Concomitant]
     Indication: PROPHYLAXIS

REACTIONS (1)
  - CONSTIPATION [None]
